FAERS Safety Report 4631026-0 (Version None)
Quarter: 2005Q2

REPORT INFORMATION
  Report Type: 
  Country: None (occurrence: None)
  Receive Date: 20050406
  Receipt Date: 20050406
  Transmission Date: 20051028
  Serious: No
  Sender: FDA-Public Use
  Company Number: None

PATIENT
  Age: 53 Year
  Sex: Female
  Weight: 204.1187 kg

DRUGS (2)
  1. PREVACID [Suspect]
     Dosage: 2 DAILY PO
     Route: 048
     Dates: start: 20030114, end: 20030201
  2. PRILOSEC OTC [Suspect]
     Dosage: 2 DAILY PO
     Route: 048
     Dates: start: 20041116, end: 20050101

REACTIONS (6)
  - DIARRHOEA [None]
  - DIZZINESS [None]
  - DRUG INEFFECTIVE [None]
  - NAUSEA [None]
  - TINNITUS [None]
  - VOMITING [None]
